FAERS Safety Report 4982712-4 (Version None)
Quarter: 2006Q2

REPORT INFORMATION
  Report Type: 
  Country: None (occurrence: None)
  Receive Date: 20060425
  Receipt Date: 20051215
  Transmission Date: 20061013
  Serious: Yes (Hospitalization, Disabling, Other)
  Sender: FDA-Public Use
  Company Number: US-MERCK-0512USA02554

PATIENT
  Age: 47 Year
  Sex: Female
  Weight: 100 kg

DRUGS (1)
  1. VIOXX [Suspect]
     Indication: SPONDYLITIS
     Route: 048
     Dates: start: 20030908, end: 20040930

REACTIONS (6)
  - CARDIAC DISORDER [None]
  - DEPRESSION [None]
  - HEAD INJURY [None]
  - HEART INJURY [None]
  - MEMORY IMPAIRMENT [None]
  - ROAD TRAFFIC ACCIDENT [None]
